FAERS Safety Report 23337198 (Version 1)
Quarter: 2023Q4

REPORT INFORMATION
  Report Type: Spontaneous
  Country: US (occurrence: US)
  Receive Date: 20231226
  Receipt Date: 20231226
  Transmission Date: 20240110
  Serious: No
  Sender: FDA-Public Use
  Company Number: US-PADAGIS-2023PAD01816

PATIENT

DRUGS (1)
  1. ESTRADIOL VAGINAL [Suspect]
     Active Substance: ESTRADIOL
     Indication: Vaginal disorder
     Dosage: UNK
     Route: 065
     Dates: start: 20231207, end: 20231208

REACTIONS (4)
  - Application site pruritus [Unknown]
  - Application site discomfort [Unknown]
  - Product use in unapproved indication [Unknown]
  - Product physical consistency issue [Unknown]

NARRATIVE: CASE EVENT DATE: 20231207
